FAERS Safety Report 6249066-7 (Version None)
Quarter: 2009Q2

REPORT INFORMATION
  Report Type: 
  Country: None (occurrence: None)
  Receive Date: 20090629
  Receipt Date: 20090618
  Transmission Date: 20091009
  Serious: Yes (Other)
  Sender: FDA-Public Use
  Company Number: US-AVENTIS-200915435US

PATIENT
  Age: 64 Year
  Sex: Male

DRUGS (2)
  1. LANTUS [Suspect]
     Route: 058
  2. OPTICLIK (INSULIN INJECTION PEN) [Suspect]

REACTIONS (5)
  - BLOOD GLUCOSE DECREASED [None]
  - CATARACT [None]
  - GLAUCOMA [None]
  - HYPERGLYCAEMIA [None]
  - MACULAR DEGENERATION [None]
